FAERS Safety Report 20607007 (Version 1)
Quarter: 2022Q1

REPORT INFORMATION
  Report Type: Spontaneous
  Country: US (occurrence: US)
  Receive Date: 20220317
  Receipt Date: 20220317
  Transmission Date: 20220424
  Serious: Yes (Other)
  Sender: FDA-Public Use
  Company Number: US-ALKERMES INC.-ALK-2022-001251

PATIENT
  Age: 43 Year
  Sex: Male

DRUGS (2)
  1. VIVITROL [Suspect]
     Active Substance: NALTREXONE
     Indication: Drug dependence
     Dosage: 380 MILLIGRAM, QMO
     Route: 030
     Dates: start: 20180109
  2. VIVITROL [Suspect]
     Active Substance: NALTREXONE
     Indication: Steroid dependence

REACTIONS (3)
  - Surgery [Recovered/Resolved]
  - Pain [Not Recovered/Not Resolved]
  - Off label use [Not Recovered/Not Resolved]

NARRATIVE: CASE EVENT DATE: 20180109
